FAERS Safety Report 8168663-5 (Version None)
Quarter: 2012Q1

REPORT INFORMATION
  Report Type: 
  Country: None (occurrence: None)
  Receive Date: 20120222
  Receipt Date: 20120207
  Transmission Date: 20120608
  Serious: Yes (Hospitalization)
  Sender: FDA-Public Use
  Company Number: DSJ-2011-25791

PATIENT
  Age: 47 Year
  Sex: Female

DRUGS (5)
  1. CHLORTHALIDONE [Suspect]
     Indication: HYPERTENSION
     Dosage: 25 MG,PER ORAL
     Route: 048
     Dates: start: 20111101
  2. CIPROFIBRATE (CIPROFIBRATE) (CIPROFIBRATE) [Concomitant]
  3. SPIRONOLACTONE [Suspect]
     Indication: HYPERTENSION
     Dosage: 50 MG,PER ORAL
     Route: 048
     Dates: start: 20111101
  4. AMLODIPINE BESYLATE AND OLMESARTAN MEDOXOMIL [Suspect]
     Indication: HYPERTENSION
     Dosage: 40/5 MG (1 IN 1 D),PER ORAL ; 40/10 MG (1 IN 1 D),PER ORAL
     Route: 048
     Dates: start: 20111101, end: 20111101
  5. AMLODIPINE BESYLATE AND OLMESARTAN MEDOXOMIL [Suspect]
     Indication: HYPERTENSION
     Dosage: 40/5 MG (1 IN 1 D),PER ORAL ; 40/10 MG (1 IN 1 D),PER ORAL
     Route: 048
     Dates: start: 20111101

REACTIONS (2)
  - BLOOD PRESSURE INCREASED [None]
  - THYROID NEOPLASM [None]
